FAERS Safety Report 4720474-6 (Version None)
Quarter: 2005Q3

REPORT INFORMATION
  Report Type: 
  Country: None (occurrence: None)
  Receive Date: 20050721
  Receipt Date: 20040729
  Transmission Date: 20060218
  Serious: Yes (Other)
  Sender: FDA-Public Use
  Company Number: US-BRISTOL-MYERS SQUIBB COMPANY-12655767

PATIENT
  Age: 56 Year
  Sex: Female
  Weight: 54 kg

DRUGS (3)
  1. GLUCOVANCE [Suspect]
     Indication: DIABETES MELLITUS
     Dosage: THERAPY INITIATED AT 2.5/500MG 2X/DAY; DECREASED TO 1.25/250 3X/DAY ON 17-FEB-03
     Route: 048
     Dates: start: 20021201
  2. INSULIN [Suspect]
     Indication: DIABETES MELLITUS
     Dosage: 5 UNITS IN AM, 5 UNITS IN PM
     Dates: start: 20021201
  3. ACTOSE [Concomitant]

REACTIONS (4)
  - ASTHENIA [None]
  - DIAPHRAGMALGIA [None]
  - HYPOGLYCAEMIA [None]
  - NIGHT SWEATS [None]
